FAERS Safety Report 25066424 (Version 1)
Quarter: 2025Q1

REPORT INFORMATION
  Report Type: Spontaneous
  Country: US (occurrence: US)
  Receive Date: 20250312
  Receipt Date: 20250312
  Transmission Date: 20250408
  Serious: No
  Sender: STRIDES
  Company Number: US-STRIDES ARCOLAB LIMITED-2025SP001809

PATIENT
  Age: 41 Year
  Sex: Male

DRUGS (5)
  1. GABAPENTIN [Suspect]
     Active Substance: GABAPENTIN
     Indication: Post-anoxic myoclonus
     Route: 048
  2. LEVETIRACETAM [Suspect]
     Active Substance: LEVETIRACETAM
     Indication: Post-anoxic myoclonus
     Route: 048
  3. CLONAZEPAM [Suspect]
     Active Substance: CLONAZEPAM
     Indication: Post-anoxic myoclonus
     Route: 048
  4. VALPROATE [Suspect]
     Active Substance: VALPROIC ACID
     Indication: Post-anoxic myoclonus
     Route: 048
  5. VALPROATE [Suspect]
     Active Substance: VALPROIC ACID
     Route: 048

REACTIONS (2)
  - Treatment noncompliance [Unknown]
  - Off label use [Unknown]
